FAERS Safety Report 7811094-5 (Version None)
Quarter: 2011Q4

REPORT INFORMATION
  Report Type: 
  Country: None (occurrence: None)
  Receive Date: 20111012
  Receipt Date: 20111012
  Transmission Date: 20120403
  Serious: Yes (Hospitalization)
  Sender: FDA-Public Use
  Company Number: None

PATIENT
  Sex: Male
  Weight: 79 kg

DRUGS (5)
  1. OXYCODONE HCL [Concomitant]
  2. ATIVAN [Concomitant]
  3. CISPLATIN [Suspect]
     Dosage: 183 MG
  4. FENTANYL-100 [Concomitant]
  5. LISINOPRIL [Concomitant]

REACTIONS (9)
  - EXCORIATION [None]
  - NAUSEA [None]
  - VOMITING [None]
  - RHINORRHOEA [None]
  - HEAD INJURY [None]
  - DEHYDRATION [None]
  - BLOOD PRESSURE DECREASED [None]
  - PAIN [None]
  - DYSPHAGIA [None]
